FAERS Safety Report 9699922 (Version 2)
Quarter: 2013Q4

REPORT INFORMATION
  Report Type: Spontaneous
  Country: CA (occurrence: CA)
  Receive Date: 20131121
  Receipt Date: 20131125
  Transmission Date: 20140711
  Serious: Yes (Death)
  Sender: FDA-Public Use
  Company Number: CA-ROCHE-1303164

PATIENT
  Age: 53 Year
  Sex: Male
  Weight: 70 kg

DRUGS (8)
  1. CLONAZEPAM [Suspect]
     Indication: PRODUCT USED FOR UNKNOWN INDICATION
     Route: 065
  2. APO-SERTRALINE [Suspect]
     Indication: PRODUCT USED FOR UNKNOWN INDICATION
     Route: 065
  3. GABAPENTIN [Concomitant]
     Route: 065
  4. LAMOTRIGINE [Concomitant]
     Route: 065
  5. NAPROXEN [Concomitant]
     Route: 065
  6. NAVANE [Concomitant]
     Route: 065
  7. NITRAZADON [Concomitant]
     Route: 065
  8. OXYCODONE [Concomitant]
     Route: 065

REACTIONS (2)
  - Accidental death [Fatal]
  - Drug level above therapeutic [Fatal]
